FAERS Safety Report 19814791 (Version 1)
Quarter: 2021Q3

REPORT INFORMATION
  Report Type: Spontaneous
  Country: US (occurrence: US)
  Receive Date: 20210910
  Receipt Date: 20210910
  Transmission Date: 20211014
  Serious: Yes (Other)
  Sender: FDA-Public Use
  Company Number: None

PATIENT
  Age: 65 Year
  Sex: Female

DRUGS (1)
  1. CLOBETASOL CRE 0.05% [Suspect]
     Active Substance: CLOBETASOL PROPIONATE
     Indication: PRODUCT USED FOR UNKNOWN INDICATION
     Route: 061
     Dates: start: 20201006, end: 20210910

REACTIONS (4)
  - Pain [None]
  - Dry skin [None]
  - Product physical consistency issue [None]
  - Erythema [None]

NARRATIVE: CASE EVENT DATE: 20210910
